FAERS Safety Report 5298045-5 (Version None)
Quarter: 2007Q2

REPORT INFORMATION
  Report Type: 
  Country: None (occurrence: None)
  Receive Date: 20070416
  Receipt Date: 20070405
  Transmission Date: 20071010
  Serious: Yes (Hospitalization)
  Sender: FDA-Public Use
  Company Number: SI-JNJFOC-20070401800

PATIENT
  Sex: Male
  Weight: 12 kg

DRUGS (7)
  1. REMICADE [Suspect]
     Route: 042
  2. REMICADE [Suspect]
     Route: 042
  3. REMICADE [Suspect]
     Indication: JUVENILE ARTHRITIS
     Route: 042
  4. METHYLPREDNISOLONE 16MG TAB [Concomitant]
     Indication: JUVENILE ARTHRITIS
     Route: 048
  5. METHOTREXATE [Concomitant]
     Indication: JUVENILE ARTHRITIS
     Route: 048
  6. BROFEN [Concomitant]
     Indication: JUVENILE ARTHRITIS
  7. OMEPRAZOLE [Concomitant]
     Indication: PROPHYLAXIS
     Route: 048

REACTIONS (2)
  - ANAPHYLACTIC REACTION [None]
  - VOMITING [None]
